FAERS Safety Report 26174305 (Version 1)
Quarter: 2025Q4

REPORT INFORMATION
  Report Type: Spontaneous
  Country: EU (occurrence: EU)
  Receive Date: 20251218
  Receipt Date: 20251218
  Transmission Date: 20260117
  Serious: Yes (Other)
  Sender: TEVA
  Company Number: None

PATIENT
  Age: 13 Year
  Sex: Female

DRUGS (1)
  1. FLUOXETINE [Suspect]
     Active Substance: FLUOXETINE HYDROCHLORIDE
     Indication: Anxiety
     Dosage: 1X1
     Route: 065
     Dates: start: 20240219, end: 20251114

REACTIONS (3)
  - Personality change [Recovering/Resolving]
  - Emotional poverty [Recovering/Resolving]
  - Lack of empathy [Recovering/Resolving]

NARRATIVE: CASE EVENT DATE: 20241114
